FAERS Safety Report 9518171 (Version 1)
Quarter: 2013Q3

REPORT INFORMATION
  Report Type: Spontaneous
  Country: US (occurrence: US)
  Receive Date: 20130912
  Receipt Date: 20130912
  Transmission Date: 20140515
  Serious: No
  Sender: FDA-Public Use
  Company Number: US-BAYER-2013-109861

PATIENT
  Age: 60 Year
  Sex: Male
  Weight: 73 kg

DRUGS (6)
  1. BETASERON [Suspect]
     Dosage: 0.25 MG, QOD
     Route: 058
  2. CLONAZEPAM [Concomitant]
     Dosage: 2 MG, UNK
  3. MULTIVITAMIN [Concomitant]
  4. TEMAZEPAM [Concomitant]
     Dosage: 30 MG, UNK
  5. VITAMIN C [Concomitant]
     Dosage: 500 MG, UNK
  6. TYLENOL [PARACETAMOL] [Concomitant]
     Dosage: 325 MG, UNK

REACTIONS (3)
  - Insomnia [Unknown]
  - Hyperhidrosis [Unknown]
  - Chills [Unknown]
